FAERS Safety Report 23715146 (Version 1)
Quarter: 2024Q2

REPORT INFORMATION
  Report Type: Spontaneous
  Country: CN (occurrence: None)
  Receive Date: 20240407
  Receipt Date: 20240407
  Transmission Date: 20240715
  Serious: Yes (Other)
  Sender: FDA-Public Use
  Company Number: 2024A080174

PATIENT
  Age: 19054 Day
  Sex: Male
  Weight: 70 kg

DRUGS (7)
  1. BUDESONIDE [Suspect]
     Active Substance: BUDESONIDE
     Indication: Pneumonia
     Route: 055
     Dates: start: 20200903, end: 20200905
  2. ACETYLCYSTEINE [Suspect]
     Active Substance: ACETYLCYSTEINE
     Indication: Pneumonia
     Route: 055
     Dates: start: 20200903, end: 20200905
  3. ORNIDAZOLE AND SODIUM CHLORID [Concomitant]
     Indication: Cholecystitis
     Route: 041
     Dates: start: 20200829, end: 20200902
  4. LEVORNIDAZOLE AND SODIUM CHLORIDE [Concomitant]
     Indication: Cholecystitis
     Route: 041
     Dates: start: 20200826, end: 20200828
  5. LEVORNIDAZOLE AND SODIUM CHLORIDE [Concomitant]
     Indication: Cholecystitis
     Route: 041
     Dates: start: 20200903, end: 20200907
  6. CEFMINOX SODIUM [Concomitant]
     Active Substance: CEFMINOX SODIUM
     Indication: Cholecystitis
     Route: 041
     Dates: start: 20200826, end: 20200907
  7. SODIUM CHLORIDE [Concomitant]
     Active Substance: SODIUM CHLORIDE
     Indication: Menstrual disorder
     Route: 041
     Dates: start: 20200826, end: 20200827

REACTIONS (4)
  - Tachypnoea [Recovered/Resolved]
  - Vomiting [Recovered/Resolved]
  - Retching [Recovered/Resolved]
  - Procedural pain [Recovered/Resolved]

NARRATIVE: CASE EVENT DATE: 20200905
